FAERS Safety Report 9274338 (Version 2)
Quarter: 2013Q2

REPORT INFORMATION
  Report Type: Report from Study
  Country: AU (occurrence: AU)
  Receive Date: 20130506
  Receipt Date: 20130513
  Transmission Date: 20140414
  Serious: Yes (Death, Hospitalization)
  Sender: FDA-Public Use
  Company Number: AU-GILEAD-2013-0074600

PATIENT
  Age: 72 Year
  Sex: Female

DRUGS (2)
  1. AMBRISENTAN [Suspect]
     Indication: PULMONARY ARTERIAL HYPERTENSION
     Dosage: 10 MG, QD
     Route: 048
     Dates: start: 20101025, end: 20130425
  2. AMBRISENTAN [Suspect]
     Indication: SCLERODERMA

REACTIONS (3)
  - Death [Fatal]
  - Fall [Unknown]
  - Femur fracture [Unknown]
